FAERS Safety Report 24315453 (Version 1)
Quarter: 2024Q3

REPORT INFORMATION
  Report Type: Spontaneous
  Country: US (occurrence: US)
  Receive Date: 20240913
  Receipt Date: 20240913
  Transmission Date: 20241017
  Serious: Yes (Hospitalization, Other)
  Sender: TAKEDA
  Company Number: US-TAKEDA-2024TUS090101

PATIENT
  Age: 78 Year
  Sex: Female

DRUGS (2)
  1. GLASSIA [Suspect]
     Active Substance: .ALPHA.1-PROTEINASE INHIBITOR HUMAN
     Indication: Alpha-1 antitrypsin deficiency
     Dosage: 1000 MILLIGRAM, 1/WEEK
     Route: 042
     Dates: start: 20201130
  2. GLASSIA [Suspect]
     Active Substance: .ALPHA.1-PROTEINASE INHIBITOR HUMAN
     Indication: Alpha-1 antitrypsin deficiency
     Dosage: 1000 MILLIGRAM, 1/WEEK
     Route: 042
     Dates: start: 20201130

REACTIONS (3)
  - Internal haemorrhage [Unknown]
  - Post procedural haemorrhage [Unknown]
  - Polyp [Unknown]

NARRATIVE: CASE EVENT DATE: 20240905
